FAERS Safety Report 5007780-5 (Version None)
Quarter: 2006Q2

REPORT INFORMATION
  Report Type: 
  Country: None (occurrence: None)
  Receive Date: 20060522
  Receipt Date: 20060309
  Transmission Date: 20061013
  Serious: Yes (Death, Hospitalization)
  Sender: FDA-Public Use
  Company Number: FR-GLAXOSMITHKLINE-B0415443A

PATIENT
  Age: 86 Year
  Sex: Female

DRUGS (3)
  1. DEROXAT [Suspect]
     Indication: ANXIETY
     Dosage: 20MG VARIABLE DOSE
     Route: 048
     Dates: start: 20040101, end: 20060310
  2. LOVENOX [Concomitant]
     Dosage: .4ML PER DAY
     Route: 058
     Dates: start: 20060201
  3. CORTICOSTEROID [Concomitant]
     Indication: RESPIRATORY FAILURE
     Route: 065

REACTIONS (14)
  - AGITATION [None]
  - ANXIETY [None]
  - CONFUSIONAL STATE [None]
  - DEPRESSED LEVEL OF CONSCIOUSNESS [None]
  - FALL [None]
  - HAEMATOMA [None]
  - HALLUCINATION [None]
  - HALLUCINATION, VISUAL [None]
  - HYPERCAPNIA [None]
  - MENTAL DISORDER [None]
  - PULMONARY EMBOLISM [None]
  - RESPIRATORY ALKALOSIS [None]
  - RESPIRATORY FAILURE [None]
  - TIBIA FRACTURE [None]
